FAERS Safety Report 15859963 (Version 4)
Quarter: 2019Q1

REPORT INFORMATION
  Report Type: Spontaneous
  Country: JP (occurrence: JP)
  Receive Date: 20190123
  Receipt Date: 20190130
  Transmission Date: 20190417
  Serious: Yes (Other)
  Sender: FDA-Public Use
  Company Number: PHHY2019JP010330

PATIENT
  Age: 60 Year
  Sex: Male

DRUGS (2)
  1. PREDNISOLONE. [Suspect]
     Active Substance: PREDNISOLONE
     Indication: DRUG REACTION WITH EOSINOPHILIA AND SYSTEMIC SYMPTOMS
     Dosage: 15 MG, QD
     Route: 065
  2. PREDNISOLONE. [Suspect]
     Active Substance: PREDNISOLONE
     Dosage: 30 MG, QD
     Route: 065

REACTIONS (10)
  - Ketosis [Unknown]
  - Metabolic acidosis [Unknown]
  - Fatigue [Unknown]
  - Drug ineffective [Unknown]
  - Fulminant type 1 diabetes mellitus [Unknown]
  - Hyperglycaemia [Unknown]
  - Hypothyroidism [Unknown]
  - Blood thyroid stimulating hormone increased [Unknown]
  - Heart rate increased [Unknown]
  - Thirst [Unknown]
